FAERS Safety Report 13884940 (Version 2)
Quarter: 2017Q3

REPORT INFORMATION
  Report Type: Spontaneous
  Country: US (occurrence: US)
  Receive Date: 20170821
  Receipt Date: 20170821
  Transmission Date: 20171127
  Serious: Yes (Life-Threatening, Hospitalization, Other)
  Sender: FDA-Public Use
  Company Number: US-TESARO, INC-US-2017TSO02448

PATIENT

DRUGS (1)
  1. ZEJULA [Suspect]
     Active Substance: NIRAPARIB
     Indication: PRODUCT USED FOR UNKNOWN INDICATION
     Dosage: UNK
     Route: 065
     Dates: start: 201707, end: 2017

REACTIONS (4)
  - Thrombocytopenia [Unknown]
  - Knee operation [Recovered/Resolved]
  - Cardiac disorder [Unknown]
  - Blood blister [Unknown]

NARRATIVE: CASE EVENT DATE: 20170711
